FAERS Safety Report 7658776-6 (Version None)
Quarter: 2011Q3

REPORT INFORMATION
  Report Type: 
  Country: None (occurrence: None)
  Receive Date: 20110805
  Receipt Date: 20110805
  Transmission Date: 20111222
  Serious: Yes (Other)
  Sender: FDA-Public Use
  Company Number: None

PATIENT
  Age: 82 Year
  Sex: Male
  Weight: 60.781 kg

DRUGS (1)
  1. VASOPRESSIN [Suspect]
     Dosage: 20 UNITS
     Route: 042
     Dates: start: 20110731, end: 20110731

REACTIONS (1)
  - PRODUCT QUALITY ISSUE [None]
